FAERS Safety Report 6094818-X (Version None)
Quarter: 2009Q1

REPORT INFORMATION
  Report Type: 
  Country: None (occurrence: None)
  Receive Date: 20090227
  Receipt Date: 20090220
  Transmission Date: 20090719
  Serious: Yes (Other)
  Sender: FDA-Public Use
  Company Number: ES-RANBAXY-2009US-22013

PATIENT

DRUGS (1)
  1. VERAPAMIL [Suspect]
     Indication: ESSENTIAL HYPERTENSION
     Dosage: 120 MG, QD
     Route: 065

REACTIONS (4)
  - BRADYKINESIA [None]
  - DEPRESSION [None]
  - MUSCLE RIGIDITY [None]
  - PARKINSONISM [None]
